FAERS Safety Report 23149380 (Version 1)
Quarter: 2023Q4

REPORT INFORMATION
  Report Type: Spontaneous
  Country: GB (occurrence: GB)
  Receive Date: 20231106
  Receipt Date: 20231106
  Transmission Date: 20240110
  Serious: Yes (Disabling, Other)
  Sender: FDA-Public Use
  Company Number: None

PATIENT
  Sex: Female

DRUGS (1)
  1. HYDROCORTISONE [Suspect]
     Active Substance: HYDROCORTISONE
     Indication: Product used for unknown indication
     Route: 065

REACTIONS (18)
  - Steroid withdrawal syndrome [Recovering/Resolving]
  - Topical steroid withdrawal reaction [Recovering/Resolving]
  - Multiple allergies [Recovering/Resolving]
  - Skin burning sensation [Recovering/Resolving]
  - Skin infection [Recovering/Resolving]
  - Insomnia [Not Recovered/Not Resolved]
  - Alopecia [Recovering/Resolving]
  - Skin exfoliation [Not Recovered/Not Resolved]
  - Skin erosion [Recovering/Resolving]
  - Dry skin [Not Recovered/Not Resolved]
  - Skin exfoliation [Not Recovered/Not Resolved]
  - Pruritus [Not Recovered/Not Resolved]
  - Urticaria [Recovered/Resolved]
  - Dry skin [Recovering/Resolving]
  - Skin weeping [Not Recovered/Not Resolved]
  - Sticky skin [Recovering/Resolving]
  - Decreased appetite [Recovering/Resolving]
  - Weight decreased [Recovering/Resolving]
